FAERS Safety Report 9891624 (Version 2)
Quarter: 2014Q2

REPORT INFORMATION
  Report Type: Spontaneous
  Country: AU (occurrence: AU)
  Receive Date: 20140212
  Receipt Date: 20140604
  Transmission Date: 20141212
  Serious: Yes (Death, Other)
  Sender: FDA-Public Use
  Company Number: AU-PFIZER INC-2014035852

PATIENT
  Sex: 0

DRUGS (1)
  1. ZITHROMAX [Suspect]
     Route: 042

REACTIONS (3)
  - Incorrect drug administration rate [Fatal]
  - Cross sensitivity reaction [Fatal]
  - Electrocardiogram QT prolonged [Fatal]
